FAERS Safety Report 20525439 (Version 1)
Quarter: 2022Q1

REPORT INFORMATION
  Report Type: Spontaneous
  Country: US (occurrence: None)
  Receive Date: 20220227
  Receipt Date: 20220227
  Transmission Date: 20220423
  Serious: Yes (Hospitalization)
  Sender: FDA-Public Use
  Company Number: None

PATIENT
  Age: 78 Year
  Sex: Male
  Weight: 123.75 kg

DRUGS (2)
  1. TEGRETOL XR [Suspect]
     Active Substance: CARBAMAZEPINE
     Indication: Post-traumatic epilepsy
     Dosage: FREQUENCY : TWICE A DAY;?
     Route: 048
     Dates: start: 20220226, end: 20220227
  2. generic tegretolxr (no BA or BE [Concomitant]
     Dates: start: 20220226, end: 20220227

REACTIONS (5)
  - Nystagmus [None]
  - Speech disorder [None]
  - Dizziness [None]
  - Vision blurred [None]
  - Balance disorder [None]

NARRATIVE: CASE EVENT DATE: 20220226
